FAERS Safety Report 19641301 (Version 5)
Quarter: 2022Q1

REPORT INFORMATION
  Report Type: Spontaneous
  Country: US (occurrence: US)
  Receive Date: 20210730
  Receipt Date: 20220202
  Transmission Date: 20220423
  Serious: Yes (Other)
  Sender: FDA-Public Use
  Company Number: US-PFIZER INC-2021816299

PATIENT
  Age: 89 Year
  Sex: Female

DRUGS (1)
  1. XELJANZ XR [Suspect]
     Active Substance: TOFACITINIB CITRATE
     Indication: Rheumatoid arthritis
     Dosage: 11 MG, DAILY
     Route: 048
     Dates: start: 2020

REACTIONS (15)
  - Infection [Unknown]
  - Rheumatoid arthritis [Unknown]
  - Bedridden [Unknown]
  - Glaucoma [Unknown]
  - Heart rate increased [Unknown]
  - Asthenia [Unknown]
  - Blood potassium decreased [Not Recovered/Not Resolved]
  - Vitamin D decreased [Unknown]
  - Depression [Not Recovered/Not Resolved]
  - Urinary tract infection [Unknown]
  - Insomnia [Unknown]
  - Feeding disorder [Unknown]
  - Illness [Unknown]
  - Mobility decreased [Unknown]
  - Hernia [Unknown]

NARRATIVE: CASE EVENT DATE: 20211201
